FAERS Safety Report 17860850 (Version 1)
Quarter: 2020Q2

REPORT INFORMATION
  Report Type: Report from Study
  Country: US (occurrence: US)
  Receive Date: 20200604
  Receipt Date: 20200604
  Transmission Date: 20200714
  Serious: Yes (Death)
  Sender: FDA-Public Use
  Company Number: US-PFIZER INC-2020218096

PATIENT

DRUGS (1)
  1. INLYTA [Suspect]
     Active Substance: AXITINIB
     Dosage: UNK (2L OR 3L+ INLYTA MONOTHERAPY)

REACTIONS (2)
  - Disease progression [Unknown]
  - Death [Fatal]
